FAERS Safety Report 17192399 (Version 1)
Quarter: 2019Q4

REPORT INFORMATION
  Report Type: Spontaneous
  Country: SE (occurrence: SE)
  Receive Date: 20191223
  Receipt Date: 20191223
  Transmission Date: 20200122
  Serious: Yes (Hospitalization, Other)
  Sender: FDA-Public Use
  Company Number: SE-SA-2019SA351473

PATIENT
  Age: 57 Year
  Sex: Female

DRUGS (3)
  1. PROPAVAN [Suspect]
     Active Substance: PROPIOMAZINE
     Dosage: 20 TABL PROPAVAN (TABLETS)
     Route: 048
     Dates: start: 20190112, end: 20190112
  2. STILNOCT [Suspect]
     Active Substance: ZOLPIDEM TARTRATE
     Dosage: 12 PCS 10 MG OF TABLET
     Route: 048
     Dates: start: 20190112, end: 20190112
  3. DIAZEPAM. [Suspect]
     Active Substance: DIAZEPAM
     Dosage: 40 TABLETS STESOLID
     Route: 048
     Dates: start: 20190112, end: 20190112

REACTIONS (2)
  - Intentional overdose [Unknown]
  - Intentional self-injury [Unknown]

NARRATIVE: CASE EVENT DATE: 20190112
